FAERS Safety Report 4476972-6 (Version None)
Quarter: 2004Q4

REPORT INFORMATION
  Report Type: 
  Country: None (occurrence: None)
  Receive Date: 20041018
  Receipt Date: 20041007
  Transmission Date: 20050328
  Serious: Yes (Disabling, Other)
  Sender: FDA-Public Use
  Company Number: US-JNJFOC-20041003562

PATIENT
  Sex: Male

DRUGS (1)
  1. REMICADE [Suspect]
     Indication: CROHN'S DISEASE
     Dosage: APPROXIMATELY 5 INFUSIONS
     Route: 042

REACTIONS (4)
  - ANHEDONIA [None]
  - DEMYELINATION [None]
  - INJURY [None]
  - SYSTEMIC LUPUS ERYTHEMATOSUS [None]
